FAERS Safety Report 4325680-0 (Version None)
Quarter: 2004Q1

REPORT INFORMATION
  Report Type: 
  Country: None (occurrence: None)
  Receive Date: 20040324
  Receipt Date: 20040305
  Transmission Date: 20041129
  Serious: Yes (Hospitalization, Disabling, Other)
  Sender: FDA-Public Use
  Company Number: US_010667442

PATIENT
  Age: 54 Year
  Sex: Female
  Weight: 73 kg

DRUGS (6)
  1. HUMULIN N [Suspect]
     Indication: DIABETES MELLITUS
     Dosage: 45 U/1 IN THE MORNING
     Dates: start: 19990101, end: 20010601
  2. HUMULIN R [Suspect]
     Indication: DIABETES MELLITUS
     Dates: start: 19990101, end: 20010601
  3. NPH ILETIN II (PORK) [Suspect]
     Indication: DIABETES MELLITUS
     Dosage: 40 U/1 IN THE MORNING
     Dates: start: 19550101
  4. REGULAR INSULIN [Suspect]
     Indication: DIABETES MELLITUS
     Dates: start: 19550101
  5. NOVOLIN N [Concomitant]
  6. NOVOLIN R [Concomitant]

REACTIONS (9)
  - ARTERIAL THROMBOSIS LIMB [None]
  - ARTHRITIS [None]
  - ATHEROSCLEROSIS [None]
  - BLOOD GLUCOSE FLUCTUATION [None]
  - DIFFICULTY IN WALKING [None]
  - DRUG INEFFECTIVE [None]
  - GLYCOSYLATED HAEMOGLOBIN INCREASED [None]
  - NEUROPATHY [None]
  - OEDEMA PERIPHERAL [None]
